FAERS Safety Report 19705485 (Version 1)
Quarter: 2021Q3

REPORT INFORMATION
  Report Type: Report from Study
  Country: IN (occurrence: IN)
  Receive Date: 20210816
  Receipt Date: 20210816
  Transmission Date: 20211014
  Serious: Yes (Life-Threatening, Hospitalization)
  Sender: FDA-Public Use
  Company Number: IN-MYLANLABS-2021M1050991

PATIENT

DRUGS (4)
  1. DOBUTAMINE [Suspect]
     Active Substance: DOBUTAMINE HYDROCHLORIDE
     Indication: SHOCK
     Dosage: 15 MICROGRAM/KILOGRAM, QMINUTE
     Route: 065
  2. NORADRENALINE                      /00127501/ [Suspect]
     Active Substance: NOREPINEPHRINE
     Indication: SHOCK
     Dosage: 0.4 MICROGRAM/KILOGRAM, QMINUTE
     Route: 065
  3. EPINEPHRINE. [Suspect]
     Active Substance: EPINEPHRINE
     Indication: SHOCK
     Dosage: 0.6 MICROGRAM/KILOGRAM, QMINUTE
     Route: 065
  4. DOPAMINE [Suspect]
     Active Substance: DOPAMINE HYDROCHLORIDE
     Indication: SHOCK
     Dosage: 17.5 MICROGRAM/KILOGRAM, QMINUTE
     Route: 065

REACTIONS (1)
  - Therapy non-responder [Unknown]
